FAERS Safety Report 9285252 (Version 1)
Quarter: 2013Q2

REPORT INFORMATION
  Report Type: Spontaneous
  Country: CA (occurrence: CA)
  Receive Date: 20130513
  Receipt Date: 20130513
  Transmission Date: 20140414
  Serious: Yes (Other)
  Sender: FDA-Public Use
  Company Number: CA-JNJFOC-20120520824

PATIENT
  Age: 47 Year
  Sex: Female
  Weight: 66 kg

DRUGS (8)
  1. REMICADE [Suspect]
     Indication: PSORIATIC ARTHROPATHY
     Route: 042
     Dates: start: 20120529
  2. REMICADE [Suspect]
     Indication: PSORIATIC ARTHROPATHY
     Dosage: PATIENT HAD RECEIVED 3 DOSES OF INFUSION; LOADING DOSE. APPROXIMATE NUMBER OF INFUSIONS RECEIVED: 6
     Route: 042
     Dates: start: 20120215
  3. VENTOLIN [Concomitant]
     Route: 065
  4. ATROVENT [Concomitant]
     Route: 065
  5. SINGULAIR [Concomitant]
     Route: 065
  6. LIPITOR [Concomitant]
     Route: 065
  7. ARAVA [Concomitant]
     Route: 065
  8. VITAMIN D [Concomitant]
     Route: 065

REACTIONS (6)
  - Flushing [Recovered/Resolved]
  - Cough [Recovering/Resolving]
  - Dyspnoea [Recovered/Resolved]
  - Infusion related reaction [Recovering/Resolving]
  - Laryngeal oedema [Recovered/Resolved]
  - Bronchospasm [Recovered/Resolved]
